FAERS Safety Report 17541526 (Version 1)
Quarter: 2020Q1

REPORT INFORMATION
  Report Type: Other
  Country: AT (occurrence: AT)
  Receive Date: 20200313
  Receipt Date: 20200313
  Transmission Date: 20200409
  Serious: Yes (Life-Threatening, Hospitalization, Disabling)
  Sender: FDA-Public Use
  Company Number: AT-NOSTRUM LABORATORIES, INC.-2081613

PATIENT
  Age: 66 Year
  Sex: Female

DRUGS (1)
  1. VENLAFAXINE HYDROCHLORIDE. [Suspect]
     Active Substance: VENLAFAXINE HYDROCHLORIDE
     Indication: MAJOR DEPRESSION
     Route: 048

REACTIONS (3)
  - Generalised tonic-clonic seizure [Unknown]
  - Congenital thrombocyte disorder [Recovered/Resolved]
  - Haemorrhage intracranial [Recovered/Resolved with Sequelae]
